FAERS Safety Report 9753216 (Version 2)
Quarter: 2013Q4

REPORT INFORMATION
  Report Type: Spontaneous
  Country: US (occurrence: US)
  Receive Date: 20131213
  Receipt Date: 20131213
  Transmission Date: 20140711
  Serious: No
  Sender: FDA-Public Use
  Company Number: US-GILEAD-2010-0026988

PATIENT
  Sex: Female

DRUGS (18)
  1. LETAIRIS [Suspect]
     Indication: PULMONARY ARTERIAL HYPERTENSION
     Route: 048
     Dates: start: 20070918
  2. REVATIO [Concomitant]
  3. NORVASC [Concomitant]
  4. QUESTRAN [Concomitant]
  5. ZYVOX [Concomitant]
  6. VANCOCIN [Concomitant]
  7. LEVAQUIN [Concomitant]
  8. IRON [Concomitant]
  9. BONIVA [Concomitant]
  10. NEXIUM [Concomitant]
  11. SALAGEN [Concomitant]
  12. VITAMIN D [Concomitant]
  13. MULTIVITAMIN [Concomitant]
  14. GLUCOSAMINE-CHONDR [Concomitant]
  15. VITAMIN B6 [Concomitant]
  16. VITAMIN B12 [Concomitant]
  17. FISH OIL [Concomitant]
  18. VITAMIN C [Concomitant]

REACTIONS (1)
  - Muscular weakness [Unknown]
